FAERS Safety Report 8303792-4 (Version None)
Quarter: 2012Q1

REPORT INFORMATION
  Report Type: 
  Country: None (occurrence: None)
  Receive Date: 20120326
  Receipt Date: 20120111
  Transmission Date: 20120608
  Serious: Yes (Other)
  Sender: FDA-Public Use
  Company Number: PHEH2012US000652

PATIENT
  Age: 69 Year
  Sex: Female
  Weight: 68 kg

DRUGS (13)
  1. TASIGNA [Suspect]
     Indication: CHRONIC MYELOID LEUKAEMIA
     Dosage: 400 MG, BID, ORAL, 400 MG, DAILY, ORAL, 400 MG, DAILY, ORAL, 200 MG, BID, ORAL, 150 MG, BID, ORAL
     Route: 048
     Dates: start: 20100615
  2. TASIGNA [Suspect]
     Indication: CHRONIC MYELOID LEUKAEMIA
     Dosage: 400 MG, BID, ORAL, 400 MG, DAILY, ORAL, 400 MG, DAILY, ORAL, 200 MG, BID, ORAL, 150 MG, BID, ORAL
     Route: 048
     Dates: start: 20060401
  3. TASIGNA [Suspect]
     Indication: CHRONIC MYELOID LEUKAEMIA
     Dosage: 400 MG, BID, ORAL, 400 MG, DAILY, ORAL, 400 MG, DAILY, ORAL, 200 MG, BID, ORAL, 150 MG, BID, ORAL
     Route: 048
     Dates: start: 20100207
  4. TASIGNA [Suspect]
     Indication: CHRONIC MYELOID LEUKAEMIA
     Dosage: 400 MG, BID, ORAL, 400 MG, DAILY, ORAL, 400 MG, DAILY, ORAL, 200 MG, BID, ORAL, 150 MG, BID, ORAL
     Route: 048
     Dates: start: 20120110
  5. VITAMIN B1 TAB [Concomitant]
  6. FISH OIL (FISH OIL) [Concomitant]
  7. BACLOFEN [Concomitant]
  8. ASCORBIC ACID [Concomitant]
  9. MILK THISTLE [Concomitant]
  10. VITAMIN B12 [Concomitant]
  11. STEROIDS (NO INGREDIENTS/SUBSTANCES) [Concomitant]
  12. CLONAZEPAM [Concomitant]
  13. NEURONTIN [Concomitant]

REACTIONS (5)
  - ABDOMINAL PAIN [None]
  - GASTROINTESTINAL HAEMORRHAGE [None]
  - PELVIC PAIN [None]
  - PANCREATITIS [None]
  - HAEMATOCHEZIA [None]
